FAERS Safety Report 13563836 (Version 8)
Quarter: 2020Q3

REPORT INFORMATION
  Report Type: Report from Study
  Country: TR (occurrence: TR)
  Receive Date: 20170519
  Receipt Date: 20170807
  Transmission Date: 20201104
  Serious: Yes (Life-Threatening, Other)
  Sender: FDA-Public Use
  Company Number: TR-JNJFOC-20170515226

PATIENT
  Age: 5 Year
  Sex: Male
  Weight: 13.5 kg

DRUGS (54)
  1. PREDNISOLONE. [Suspect]
     Active Substance: PREDNISOLONE
     Indication: LYMPHOMA
     Route: 037
  2. ALLOPURINOL. [Concomitant]
     Active Substance: ALLOPURINOL
     Indication: TUMOUR LYSIS SYNDROME
     Route: 048
     Dates: start: 20170509
  3. ALLOPURINOL. [Concomitant]
     Active Substance: ALLOPURINOL
     Indication: PROPHYLAXIS
     Route: 048
     Dates: start: 20170509
  4. FAMOTIDINE. [Concomitant]
     Active Substance: FAMOTIDINE
     Indication: PROPHYLAXIS
     Route: 042
     Dates: start: 20170511, end: 20170511
  5. CALCIUM GLUCONATE MONOHYDRATE [Concomitant]
     Indication: HYPOCALCAEMIA
     Route: 042
     Dates: start: 20170512, end: 20170512
  6. CALCIUM GLUCONATE MONOHYDRATE [Concomitant]
     Indication: PROPHYLAXIS
     Route: 042
     Dates: start: 20170512, end: 20170512
  7. HUMAN ALBUMIN [Concomitant]
     Active Substance: ALBUMIN HUMAN
     Indication: HYPOALBUMINAEMIA
     Route: 042
     Dates: start: 20170522, end: 20170522
  8. OCTAGAM IMMUNE GLOBULIN (HUMAN) [Concomitant]
     Active Substance: HUMAN IMMUNOGLOBULIN G
     Indication: SEPSIS
     Route: 042
     Dates: start: 20170514, end: 20170514
  9. MAGNESIUM SULFATE. [Concomitant]
     Active Substance: MAGNESIUM SULFATE
     Indication: MINERAL SUPPLEMENTATION
     Route: 042
     Dates: start: 20170515
  10. IBRUTINIB [Suspect]
     Active Substance: IBRUTINIB
     Indication: LYMPHOMA
     Route: 048
     Dates: start: 20170530
  11. EPDANTOIN [Concomitant]
     Indication: PROPHYLAXIS
     Route: 048
     Dates: start: 201612, end: 20170507
  12. ACETAMINOPHEN. [Concomitant]
     Active Substance: ACETAMINOPHEN
     Indication: PAIN PROPHYLAXIS
     Dosage: 250/50 MG/ML
     Route: 048
     Dates: start: 20170507, end: 20170507
  13. LASIX [Concomitant]
     Active Substance: FUROSEMIDE
     Indication: FLUID BALANCE ASSESSMENT
     Dosage: 1.4 CC
     Route: 042
     Dates: start: 20170512
  14. AMBISOME [Concomitant]
     Active Substance: AMPHOTERICIN B
     Indication: SEPSIS
     Route: 042
     Dates: start: 20170512
  15. CALCIUM GLUCONATE MONOHYDRATE [Concomitant]
     Indication: PROPHYLAXIS
     Route: 042
     Dates: start: 20170512, end: 20170513
  16. TEKOSIT [Concomitant]
     Indication: SEPSIS
     Route: 042
     Dates: start: 20170512, end: 20170512
  17. TEKOSIT [Concomitant]
     Indication: SEPSIS
     Route: 042
     Dates: start: 20170512
  18. TEKOSIT [Concomitant]
     Indication: INFECTION
     Route: 042
     Dates: start: 20170512, end: 20170512
  19. TEKOSIT [Concomitant]
     Indication: INFECTION
     Route: 042
     Dates: start: 20170512
  20. CALCIUM GLUCONATE MONOHYDRATE [Concomitant]
     Indication: HYPOCALCAEMIA
     Route: 042
     Dates: start: 20170514
  21. MAGNESIUM SULFATE. [Concomitant]
     Active Substance: MAGNESIUM SULFATE
     Indication: HYPOMAGNESAEMIA
     Route: 042
     Dates: start: 20170514, end: 20170514
  22. IBRUTINIB [Suspect]
     Active Substance: IBRUTINIB
     Indication: LYMPHOMA
     Route: 048
     Dates: start: 20170508, end: 20170514
  23. IDARUBICIN [Suspect]
     Active Substance: IDARUBICIN
     Indication: LYMPHOMA
     Route: 042
     Dates: start: 20170510, end: 20170511
  24. DEXAMETHASONE. [Suspect]
     Active Substance: DEXAMETHASONE
     Indication: LYMPHOMA
     Route: 042
     Dates: start: 20170512, end: 20170514
  25. CYTARABINE. [Suspect]
     Active Substance: CYTARABINE
     Indication: LYMPHOMA
     Route: 037
  26. TEKOSIT [Concomitant]
     Indication: INFECTION
     Route: 042
     Dates: start: 20170512, end: 20170513
  27. TEKOSIT [Concomitant]
     Indication: INFECTION
     Route: 042
     Dates: start: 20170513, end: 20170527
  28. CALCIUM GLUCONATE MONOHYDRATE [Concomitant]
     Indication: HYPOCALCAEMIA
     Route: 042
     Dates: start: 20170512, end: 20170513
  29. MAGNESIUM SULFATE. [Concomitant]
     Active Substance: MAGNESIUM SULFATE
     Indication: HYPOMAGNESAEMIA
     Route: 042
     Dates: start: 20170515
  30. RITUXIMAB. [Suspect]
     Active Substance: RITUXIMAB
     Indication: LYMPHOMA
     Route: 042
     Dates: start: 20170510, end: 20170510
  31. CARBOPLATIN. [Suspect]
     Active Substance: CARBOPLATIN
     Indication: LYMPHOMA
     Route: 042
     Dates: start: 20170510, end: 20170513
  32. VINCRISTINE [Suspect]
     Active Substance: VINCRISTINE
     Indication: LYMPHOMA
     Route: 042
     Dates: start: 20170510, end: 20170513
  33. DUPHALAC [Concomitant]
     Active Substance: LACTULOSE
     Indication: CONSTIPATION
     Route: 048
     Dates: start: 20170506, end: 20170514
  34. TEKOSIT [Concomitant]
     Indication: SEPSIS
     Route: 042
     Dates: start: 20170513, end: 20170527
  35. LASIX [Concomitant]
     Active Substance: FUROSEMIDE
     Indication: FLUID BALANCE ASSESSMENT
     Route: 042
     Dates: start: 20170523, end: 20170524
  36. POTASSIUM CITRATE. [Concomitant]
     Active Substance: POTASSIUM CITRATE
     Indication: HYPOKALAEMIA
     Route: 048
     Dates: start: 20170513, end: 20170513
  37. MAGNESIUM SULFATE. [Concomitant]
     Active Substance: MAGNESIUM SULFATE
     Indication: MINERAL SUPPLEMENTATION
     Route: 042
     Dates: start: 20170514, end: 20170514
  38. AMLODIS [Concomitant]
     Indication: HYPERTENSION
     Route: 048
     Dates: start: 201612
  39. CALCIUM GLUCONATE MONOHYDRATE [Concomitant]
     Indication: HYPOKALAEMIA
     Route: 042
     Dates: start: 20170514
  40. RISPERDAL [Concomitant]
     Active Substance: RISPERIDONE
     Indication: POSTERIOR REVERSIBLE ENCEPHALOPATHY SYNDROME
     Dosage: 1.25 CC
     Route: 048
     Dates: start: 201612
  41. DUROGESIC [Concomitant]
     Active Substance: FENTANYL
     Indication: PAIN PROPHYLAXIS
     Route: 062
     Dates: start: 20170513, end: 20170513
  42. CALCIUM GLUCONATE MONOHYDRATE [Concomitant]
     Indication: HYPOKALAEMIA
     Route: 042
     Dates: start: 20170512, end: 20170512
  43. IFOSFAMIDE. [Suspect]
     Active Substance: IFOSFAMIDE
     Indication: LYMPHOMA
     Route: 042
     Dates: start: 20170510, end: 20170514
  44. METHOTREXATE. [Suspect]
     Active Substance: METHOTREXATE
     Indication: LYMPHOMA
     Route: 037
  45. PROTECT [Concomitant]
     Indication: PROPHYLAXIS
     Route: 048
     Dates: start: 20170506
  46. EPDANTOIN [Concomitant]
     Indication: PROPHYLAXIS
     Route: 048
     Dates: start: 20170508, end: 20170508
  47. ONDAREN [Concomitant]
     Indication: PAIN PROPHYLAXIS
     Route: 042
     Dates: start: 20170508, end: 20170509
  48. TAZERACIN [Concomitant]
     Indication: INFECTION PROPHYLAXIS
     Dosage: 6.3 CC
     Route: 042
     Dates: start: 20170511
  49. ULCURAN [Concomitant]
     Indication: PROPHYLAXIS
     Route: 042
     Dates: start: 20170512
  50. TEKOSIT [Concomitant]
     Indication: SEPSIS
     Route: 042
     Dates: start: 20170512, end: 20170513
  51. KONAKION [Concomitant]
     Active Substance: PHYTONADIONE
     Indication: MOUTH HAEMORRHAGE
     Route: 042
     Dates: start: 20170512, end: 20170513
  52. CALCIUM GLUCONATE MONOHYDRATE [Concomitant]
     Indication: PROPHYLAXIS
     Route: 042
     Dates: start: 20170514
  53. CALCIUM GLUCONATE MONOHYDRATE [Concomitant]
     Indication: HYPOKALAEMIA
     Route: 042
     Dates: start: 20170512, end: 20170513
  54. HUMAN ALBUMIN [Concomitant]
     Active Substance: ALBUMIN HUMAN
     Indication: HYPOALBUMINAEMIA
     Route: 042
     Dates: start: 20170512, end: 20170512

REACTIONS (3)
  - Diarrhoea [Recovered/Resolved]
  - Toxic encephalopathy [Recovered/Resolved]
  - Sepsis [Recovered/Resolved]

NARRATIVE: CASE EVENT DATE: 20170515
